FAERS Safety Report 14813757 (Version 1)
Quarter: 2018Q2

REPORT INFORMATION
  Report Type: Spontaneous
  Country: US (occurrence: US)
  Receive Date: 20180426
  Receipt Date: 20180426
  Transmission Date: 20180711
  Serious: No
  Sender: FDA-Public Use
  Company Number: US-PFIZER INC-2018170476

PATIENT
  Age: 30 Year
  Sex: Male

DRUGS (1)
  1. EFFEXOR XR [Suspect]
     Active Substance: VENLAFAXINE HYDROCHLORIDE
     Indication: BACK PAIN
     Dosage: 75 MG, TWICE A DAY
     Route: 048
     Dates: start: 20160817, end: 20161116

REACTIONS (2)
  - Abnormal behaviour [Recovered/Resolved]
  - Product use in unapproved indication [Unknown]
